FAERS Safety Report 9242873 (Version 2)
Quarter: 2013Q2

REPORT INFORMATION
  Report Type: Spontaneous
  Country: US (occurrence: US)
  Receive Date: 20130419
  Receipt Date: 20130513
  Transmission Date: 20140414
  Serious: Yes (Hospitalization, Other)
  Sender: FDA-Public Use
  Company Number: US-009507513-1304USA007037

PATIENT
  Age: 65 Year
  Sex: Male

DRUGS (4)
  1. TEMODAR [Suspect]
     Indication: GLIOBLASTOMA MULTIFORME
     Dosage: 200 MG, QD
     Route: 048
  2. LEVETIRACETAM [Concomitant]
     Indication: CONVULSION PROPHYLAXIS
  3. CEPHALEXIN [Concomitant]
     Indication: CELLULITIS
     Dosage: UNK
  4. CIPROFLOXACIN [Concomitant]
     Indication: CELLULITIS
     Dosage: UNK

REACTIONS (1)
  - Drug-induced liver injury [Recovering/Resolving]
